FAERS Safety Report 8493003-1 (Version None)
Quarter: 2012Q2

REPORT INFORMATION
  Report Type: 
  Country: None (occurrence: None)
  Receive Date: 20120627
  Receipt Date: 20120618
  Transmission Date: 20120825
  Serious: Yes (Hospitalization)
  Sender: FDA-Public Use
  Company Number: 2010JP004219

PATIENT
  Age: 77 Year
  Sex: Female

DRUGS (3)
  1. PROGRAF [Suspect]
     Indication: RHEUMATOID ARTHRITIS
     Dosage: 3 MG,/D, ORAL
     Route: 048
  2. STEROID INJECTION [Concomitant]
  3. PREDNISOLONE [Concomitant]

REACTIONS (1)
  - AORTIC DISSECTION [None]
